FAERS Safety Report 24639795 (Version 3)
Quarter: 2025Q1

REPORT INFORMATION
  Report Type: Report from Study
  Country: CA (occurrence: CA)
  Receive Date: 20241120
  Receipt Date: 20250107
  Transmission Date: 20250408
  Serious: Yes (Hospitalization)
  Sender: AMGEN
  Company Number: CA-Vifor (International) Inc.-VIT-2024-10489

PATIENT
  Age: 62 Year
  Sex: Male

DRUGS (1)
  1. AVACOPAN [Suspect]
     Active Substance: AVACOPAN
     Indication: Vasculitis
     Dosage: 60 MILLIGRAM, QD (30,MG,BID)
     Route: 048
     Dates: start: 202407, end: 202409

REACTIONS (4)
  - General physical health deterioration [Recovered/Resolved]
  - White blood cell count decreased [Unknown]
  - Blood pressure fluctuation [Unknown]
  - Off label use [Unknown]

NARRATIVE: CASE EVENT DATE: 20240701
